FAERS Safety Report 9911671 (Version 1)
Quarter: 2014Q1

REPORT INFORMATION
  Report Type: Report from Study
  Country: IT (occurrence: IT)
  Receive Date: 20140219
  Receipt Date: 20140219
  Transmission Date: 20141002
  Serious: Yes (Hospitalization)
  Sender: FDA-Public Use
  Company Number: IT-PFIZER INC-2014038123

PATIENT
  Age: 67 Year
  Sex: Male
  Weight: 57.3 kg

DRUGS (2)
  1. CYTARABINE [Suspect]
     Indication: ACUTE LYMPHOCYTIC LEUKAEMIA
     Dosage: 200 MG/M2/DAY BY CONTINUOS INFUSION OVER 7 DAYS
     Route: 042
     Dates: start: 20131107, end: 20131113
  2. MITOXANTRONE HYDROCHLORIDE [Suspect]
     Indication: ACUTE LYMPHOCYTIC LEUKAEMIA
     Dosage: 12 MG/M2 FOR 20^ DAY 1,2,3
     Route: 042
     Dates: start: 20131107, end: 20131113

REACTIONS (1)
  - Ileal perforation [Recovering/Resolving]
